FAERS Safety Report 9306672 (Version 2)
Quarter: 2013Q3

REPORT INFORMATION
  Report Type: Report from Study
  Country: US (occurrence: US)
  Receive Date: 20130523
  Receipt Date: 20130708
  Transmission Date: 20140515
  Serious: Yes (Hospitalization)
  Sender: FDA-Public Use
  Company Number: US-ACTELION-A-US2013-83454

PATIENT
  Age: 44 Year
  Sex: Male

DRUGS (3)
  1. TRACLEER [Suspect]
     Indication: PULMONARY ARTERIAL HYPERTENSION
     Dosage: UNK
     Route: 048
  2. COUMADIN [Concomitant]
  3. TYVASO [Concomitant]

REACTIONS (2)
  - Thrombosis [Recovering/Resolving]
  - Heart rate increased [Recovering/Resolving]
